FAERS Safety Report 7347205-8 (Version None)
Quarter: 2011Q1

REPORT INFORMATION
  Report Type: 
  Country: None (occurrence: None)
  Receive Date: 20110311
  Receipt Date: 20110308
  Transmission Date: 20110831
  Serious: Yes (Hospitalization)
  Sender: FDA-Public Use
  Company Number: CH-PFIZER INC-2011050166

PATIENT
  Age: 79 Year
  Sex: Male

DRUGS (9)
  1. BELOC ZOK [Concomitant]
     Dosage: 50 MG, 1X/DAY
     Route: 048
  2. VENTOLIN [Concomitant]
     Dosage: UNK
     Route: 055
  3. DAFALGAN [Concomitant]
     Dosage: 1 G, 3X/DAY
     Route: 048
  4. TEMESTA [Concomitant]
     Dosage: MAXIMUM 2-3 X 1 MG / DAY
     Route: 048
  5. PRADIF T [Concomitant]
     Dosage: 400 UG, 1X/DAY
     Route: 048
  6. CITALOPRAM [Concomitant]
     Dosage: 10 MG, 1X/DAY
     Route: 048
  7. SORTIS [Suspect]
     Dosage: 20 MG, 1X/DAY
     Route: 048
     Dates: end: 20100626
  8. NEXIUM [Concomitant]
     Dosage: 40 MG, 1X/DAY
     Route: 048
  9. DIPIPERON [Concomitant]
     Dosage: 40 MG, 1X/DAY
     Route: 048

REACTIONS (4)
  - RHABDOMYOLYSIS [None]
  - IMMOBILE [None]
  - MYALGIA [None]
  - ASTHENIA [None]
